FAERS Safety Report 10103235 (Version 2)
Quarter: 2014Q2

REPORT INFORMATION
  Report Type: Spontaneous
  Country: US (occurrence: US)
  Receive Date: 20140424
  Receipt Date: 20140424
  Transmission Date: 20141212
  Serious: No
  Sender: FDA-Public Use
  Company Number: US-BRISTOL-MYERS SQUIBB COMPANY-20207825

PATIENT
  Age: 72 Year
  Sex: Male

DRUGS (8)
  1. ELIQUIS [Suspect]
     Indication: ATRIAL FIBRILLATION
     Route: 048
  2. METOPROLOL [Suspect]
     Route: 048
  3. BENAZEPRIL HCL [Concomitant]
  4. PIOGLITAZONE HCL [Concomitant]
  5. PRAVASTATIN SODIUM [Concomitant]
  6. JANUVIA [Concomitant]
  7. HYDROCHLOROTHIAZIDE [Concomitant]
  8. AMLODIPINE [Concomitant]

REACTIONS (1)
  - Abnormal dreams [Recovered/Resolved]
